FAERS Safety Report 5349454-7 (Version None)
Quarter: 2007Q2

REPORT INFORMATION
  Report Type: 
  Country: None (occurrence: None)
  Receive Date: 20070504
  Receipt Date: 20060707
  Transmission Date: 20071010
  Serious: Yes (Hospitalization)
  Sender: FDA-Public Use
  Company Number: PHEH2006US08703

PATIENT
  Age: 58 Year
  Sex: Female

DRUGS (7)
  1. DIOVAN HCT [Suspect]
     Indication: HYPERTENSION
     Dosage: 160MG VAL, QD
     Dates: start: 20060601, end: 20060601
  2. LEVOXYL [Concomitant]
  3. COUMADIN [Concomitant]
  4. PRILOSEC [Concomitant]
  5. TRICOR [Concomitant]
  6. WELCHOL [Concomitant]
  7. TRILEPTAL [Concomitant]

REACTIONS (1)
  - HYPOTENSION [None]
